FAERS Safety Report 21607337 (Version 1)
Quarter: 2022Q4

REPORT INFORMATION
  Report Type: Spontaneous
  Country: US (occurrence: US)
  Receive Date: 20221117
  Receipt Date: 20221117
  Transmission Date: 20230113
  Serious: No
  Sender: FDA-Public Use
  Company Number: US-AUROBINDO-AUR-APL-2021-047120

PATIENT
  Sex: Female

DRUGS (1)
  1. LOSARTAN [Suspect]
     Active Substance: LOSARTAN
     Indication: Product used for unknown indication
     Dosage: 50 MILLIGRAM (2 PILLS A DAY ONE MORNING ONE NIGHT),ONCE A DAY
     Route: 065
     Dates: start: 20211029

REACTIONS (2)
  - Palpitations [Unknown]
  - Blood pressure fluctuation [Unknown]
